FAERS Safety Report 7679844-9 (Version None)
Quarter: 2011Q3

REPORT INFORMATION
  Report Type: 
  Country: None (occurrence: None)
  Receive Date: 20110812
  Receipt Date: 20110808
  Transmission Date: 20111222
  Serious: Yes (Life-Threatening, Hospitalization, Disabling, Other)
  Sender: FDA-Public Use
  Company Number: US-PFIZER INC-2011182410

PATIENT
  Sex: Male

DRUGS (1)
  1. CHANTIX [Suspect]
     Indication: SMOKING CESSATION THERAPY
     Dosage: 1 MG, 2X/DAY

REACTIONS (8)
  - LOSS OF CONSCIOUSNESS [None]
  - NERVE INJURY [None]
  - HIP FRACTURE [None]
  - FOOT FRACTURE [None]
  - PERONEAL NERVE PALSY [None]
  - MENISCUS LESION [None]
  - ANAEMIA [None]
  - MUSCLE INJURY [None]
